FAERS Safety Report 7831909-4 (Version None)
Quarter: 2011Q4

REPORT INFORMATION
  Report Type: 
  Country: None (occurrence: None)
  Receive Date: 20111021
  Receipt Date: 20111018
  Transmission Date: 20120403
  Serious: Yes (Life-Threatening, Hospitalization)
  Sender: FDA-Public Use
  Company Number: NL-MERCK-1110NLD00021

PATIENT
  Age: 40 Year
  Sex: Female
  Weight: 74 kg

DRUGS (3)
  1. ZOCOR [Suspect]
     Indication: HYPERCHOLESTEROLAEMIA
     Route: 048
     Dates: start: 19980101, end: 20090501
  2. ZETIA [Concomitant]
     Route: 048
  3. ASPIRIN [Concomitant]
     Route: 048

REACTIONS (1)
  - AORTIC ARTERIOSCLEROSIS [None]
